FAERS Safety Report 9852955 (Version 1)
Quarter: 2014Q1

REPORT INFORMATION
  Report Type: Spontaneous
  Country: IT (occurrence: IT)
  Receive Date: 20140129
  Receipt Date: 20140129
  Transmission Date: 20141002
  Serious: Yes (Hospitalization)
  Sender: FDA-Public Use
  Company Number: IT-WATSON-2014-00895

PATIENT
  Age: 35 Year
  Sex: Female

DRUGS (10)
  1. VALSARTAN-HYDROCHLOROTHIAZIDE (UNKNOWN) [Suspect]
     Indication: HYPERTENSION
     Dosage: 160 MG, DAILY
     Route: 048
     Dates: start: 20130101, end: 20131214
  2. EUTIROX [Suspect]
     Indication: POST PROCEDURAL HYPOTHYROIDISM
     Dosage: 175 MG, 1 POSOLOGICAL UNIT/ON ALTERNATE DAYS
     Route: 048
     Dates: start: 20130101, end: 20131214
  3. EUTIROX [Suspect]
     Dosage: 150 MG, 1 POSOLOGICAL UNIT/ON ALTERNATE DAYS
     Route: 048
     Dates: start: 20130101, end: 20131214
  4. ZYRTEC [Concomitant]
     Indication: PRODUCT USED FOR UNKNOWN INDICATION
     Dosage: 10 MG, UNK
     Route: 048
  5. FLIXOTIDE [Concomitant]
     Indication: PRODUCT USED FOR UNKNOWN INDICATION
     Dosage: 500 MCG, UNK
     Route: 045
  6. SPIRIVA [Concomitant]
     Indication: PRODUCT USED FOR UNKNOWN INDICATION
     Dosage: 18 MCG, UNK
     Route: 048
  7. THEOPHYLLINE [Concomitant]
     Indication: PRODUCT USED FOR UNKNOWN INDICATION
     Dosage: 400 MG, UNK
     Route: 048
  8. MONTELUKAST [Concomitant]
     Indication: PRODUCT USED FOR UNKNOWN INDICATION
     Dosage: 10 MG, UNK
     Route: 048
  9. PANTOPRAZOLE [Concomitant]
     Indication: PRODUCT USED FOR UNKNOWN INDICATION
     Dosage: 40 MG, UNK
     Route: 048
  10. ALPRAZOLAM [Concomitant]
     Indication: PRODUCT USED FOR UNKNOWN INDICATION
     Dosage: 9 DROPS, UNK
     Route: 048

REACTIONS (5)
  - Sinus tachycardia [Unknown]
  - Chest discomfort [Unknown]
  - Chest pain [Unknown]
  - Dyspnoea [Unknown]
  - Overdose [Unknown]
